FAERS Safety Report 9075759 (Version 1)
Quarter: 2013Q1

REPORT INFORMATION
  Report Type: Report from Study
  Country: US (occurrence: US)
  Receive Date: 20130129
  Receipt Date: 20130129
  Transmission Date: 20140127
  Serious: No
  Sender: FDA-Public Use
  Company Number: US-ABBOTT-12P-163-0940422-00

PATIENT
  Age: 62 Year
  Sex: Female

DRUGS (7)
  1. HUMIRA 40 MG/0.8 ML PEN [Suspect]
     Indication: RHEUMATOID ARTHRITIS
     Route: 058
     Dates: start: 201204
  2. GLYBURIDE [Concomitant]
     Indication: PRODUCT USED FOR UNKNOWN INDICATION
  3. LANTUS [Concomitant]
     Indication: PRODUCT USED FOR UNKNOWN INDICATION
     Dosage: AT BEDTIME
  4. PREDNISONE [Concomitant]
     Indication: PRODUCT USED FOR UNKNOWN INDICATION
     Dosage: 10MG DAILY
  5. LOVATIN [Concomitant]
     Indication: PRODUCT USED FOR UNKNOWN INDICATION
     Dosage: 40MG DAILY
  6. AMITRIPTYLINE [Concomitant]
     Indication: PRODUCT USED FOR UNKNOWN INDICATION
  7. OXYCODONE [Concomitant]
     Indication: PAIN
     Dosage: 5/325MG Q SIX HOURS

REACTIONS (1)
  - Drug ineffective [Not Recovered/Not Resolved]
